FAERS Safety Report 6841894-X (Version None)
Quarter: 2010Q3

REPORT INFORMATION
  Report Type: 
  Country: None (occurrence: None)
  Receive Date: 20100714
  Receipt Date: 20070716
  Transmission Date: 20110219
  Serious: Yes (Other)
  Sender: FDA-Public Use
  Company Number: US-PFIZER INC-2007059734

PATIENT
  Sex: Female
  Weight: 48.1 kg

DRUGS (3)
  1. CHANTIX [Suspect]
     Indication: SMOKING CESSATION THERAPY
     Dates: start: 20070712
  2. ZOLOFT [Suspect]
     Indication: DEPRESSION
  3. LISINOPRIL [Concomitant]

REACTIONS (3)
  - ABNORMAL DREAMS [None]
  - DEPRESSION [None]
  - HOT FLUSH [None]
